FAERS Safety Report 13475615 (Version 2)
Quarter: 2017Q2

REPORT INFORMATION
  Report Type: Report from Study
  Country: US (occurrence: US)
  Receive Date: 20170424
  Receipt Date: 20170517
  Transmission Date: 20170830
  Serious: Yes (Death)
  Sender: FDA-Public Use
  Company Number: US-ACTELION-A-US2017-152934

PATIENT
  Age: 69 Year
  Sex: Male
  Weight: 88.44 kg

DRUGS (9)
  1. LOPID [Concomitant]
     Active Substance: GEMFIBROZIL
     Dosage: 600 UNK, UNK
  2. ZESTORETIC [Concomitant]
     Active Substance: HYDROCHLOROTHIAZIDE\LISINOPRIL
     Dosage: 20-12.5 MG QD
  3. JANTOVEN [Concomitant]
     Active Substance: WARFARIN SODIUM
     Dosage: 4 MG, UNK
  4. ASA [Concomitant]
     Active Substance: ASPIRIN
     Dosage: 81 MG, UNK
  5. OPSUMIT [Suspect]
     Active Substance: MACITENTAN
     Indication: PULMONARY ARTERIAL HYPERTENSION
     Dosage: 10 MG, QD
     Route: 048
  6. ZOCOR [Concomitant]
     Active Substance: SIMVASTATIN
     Dosage: 40 UNK, UNK
  7. CATAPRES [Concomitant]
     Active Substance: CLONIDINE HYDROCHLORIDE
     Dosage: 0.2 MG, UNK
  8. COREG [Concomitant]
     Active Substance: CARVEDILOL
     Dosage: 3.125 UNK, UNK
  9. ALLOPURINOL. [Concomitant]
     Active Substance: ALLOPURINOL
     Dosage: 300 UNK, UNK

REACTIONS (1)
  - Death [Fatal]

NARRATIVE: CASE EVENT DATE: 20170323
